FAERS Safety Report 18394918 (Version 4)
Quarter: 2021Q4

REPORT INFORMATION
  Report Type: Report from Study
  Country: BR (occurrence: BR)
  Receive Date: 20201016
  Receipt Date: 20211004
  Transmission Date: 20220304
  Serious: Yes (Life-Threatening, Hospitalization, Other)
  Sender: FDA-Public Use
  Company Number: BR-BRISTOL-MYERS SQUIBB COMPANY-BMS-2020-085802

PATIENT
  Age: 60 Year
  Sex: Female
  Weight: 46 kg

DRUGS (10)
  1. NIVOLUMAB [Suspect]
     Active Substance: NIVOLUMAB
     Indication: Non-small cell lung cancer
     Dosage: 360 MILLIGRAM
     Route: 042
     Dates: start: 20181112
  2. IPILIMUMAB [Suspect]
     Active Substance: IPILIMUMAB
     Indication: Non-small cell lung cancer
     Dosage: 44 MILLIGRAM
     Route: 042
     Dates: start: 20181112
  3. PACLITAXEL [Suspect]
     Active Substance: PACLITAXEL
     Indication: Non-small cell lung cancer
     Dosage: 273 MILLIGRAM
     Route: 065
     Dates: start: 20181112, end: 20181204
  4. CARBOPLATIN [Suspect]
     Active Substance: CARBOPLATIN
     Indication: Non-small cell lung cancer
     Dosage: 576.91 MILLIGRAM
     Route: 065
     Dates: start: 20181112, end: 20181204
  5. ALBUTEROL SULFATE [Concomitant]
     Active Substance: ALBUTEROL SULFATE
     Indication: Product used for unknown indication
     Dosage: 1 DOSAGE FORM
     Route: 045
     Dates: start: 2012, end: 20210928
  6. FORMOTEROL [Concomitant]
     Active Substance: FORMOTEROL
     Indication: Product used for unknown indication
     Dosage: 12 MICROGRAM
     Route: 045
     Dates: start: 2012
  7. CLONAZEPAM [Concomitant]
     Active Substance: CLONAZEPAM
     Indication: Neck pain
     Dosage: 1 DOSAGE FORM: 4 UNITS
     Route: 048
     Dates: start: 20191105, end: 20210105
  8. TRAMADOL [Concomitant]
     Active Substance: TRAMADOL
     Indication: Headache
     Dosage: 50 MILLIGRAM
     Route: 048
     Dates: start: 20200917, end: 20210105
  9. ACYCLOVIR [Concomitant]
     Active Substance: ACYCLOVIR
     Indication: Herpes zoster
     Dosage: 750 MILLIGRAM
     Route: 042
     Dates: start: 20201013, end: 20201017
  10. DIPYRONE [Concomitant]
     Active Substance: DIPYRONE
     Indication: Herpes zoster
     Dosage: 3 GRAM
     Route: 041
     Dates: start: 20201013, end: 20201017

REACTIONS (1)
  - Febrile neutropenia [Recovered/Resolved]

NARRATIVE: CASE EVENT DATE: 20201013
